FAERS Safety Report 5019511-3 (Version None)
Quarter: 2006Q2

REPORT INFORMATION
  Report Type: 
  Country: None (occurrence: None)
  Receive Date: 20060605
  Receipt Date: 20060605
  Transmission Date: 20061013
  Serious: Yes (Hospitalization)
  Sender: FDA-Public Use
  Company Number: None

PATIENT
  Age: 75 Year
  Sex: Male
  Weight: 85.2762 kg

DRUGS (22)
  1. TAXOTERE [Suspect]
     Indication: NON-SMALL CELL LUNG CANCER
     Dosage: 20MG/M2 (40MG TOTAL) WKLY X 7 IV
     Route: 042
     Dates: start: 20060321
  2. TAXOTERE [Suspect]
     Indication: NON-SMALL CELL LUNG CANCER
     Dosage: 20MG/M2 (40MG TOTAL) WKLY X 7 IV
     Route: 042
     Dates: start: 20060328
  3. TAXOTERE [Suspect]
     Indication: NON-SMALL CELL LUNG CANCER
     Dosage: 20MG/M2 (40MG TOTAL) WKLY X 7 IV
     Route: 042
     Dates: start: 20060404
  4. TAXOTERE [Suspect]
     Indication: NON-SMALL CELL LUNG CANCER
     Dosage: 20MG/M2 (40MG TOTAL) WKLY X 7 IV
     Route: 042
     Dates: start: 20060411
  5. TAXOTERE [Suspect]
     Indication: NON-SMALL CELL LUNG CANCER
     Dosage: 20MG/M2 (40MG TOTAL) WKLY X 7 IV
     Route: 042
     Dates: start: 20060418
  6. TAXOTERE [Suspect]
     Indication: NON-SMALL CELL LUNG CANCER
     Dosage: 20MG/M2 (40MG TOTAL) WKLY X 7 IV
     Route: 042
     Dates: start: 20060425
  7. CARBOPLATIN [Suspect]
     Indication: NON-SMALL CELL LUNG CANCER
     Dosage: AUC2  WKLY X 7 IV
     Route: 042
     Dates: start: 20060321
  8. CARBOPLATIN [Suspect]
     Indication: NON-SMALL CELL LUNG CANCER
     Dosage: AUC2  WKLY X 7 IV
     Route: 042
     Dates: start: 20060328
  9. CARBOPLATIN [Suspect]
     Indication: NON-SMALL CELL LUNG CANCER
     Dosage: AUC2  WKLY X 7 IV
     Route: 042
     Dates: start: 20060404
  10. CARBOPLATIN [Suspect]
     Indication: NON-SMALL CELL LUNG CANCER
     Dosage: AUC2  WKLY X 7 IV
     Route: 042
     Dates: start: 20060404
  11. CARBOPLATIN [Suspect]
     Indication: NON-SMALL CELL LUNG CANCER
     Dosage: AUC2  WKLY X 7 IV
     Route: 042
     Dates: start: 20060418
  12. CARBOPLATIN [Suspect]
     Indication: NON-SMALL CELL LUNG CANCER
     Dosage: AUC2  WKLY X 7 IV
     Route: 042
     Dates: start: 20060425
  13. NIACIN [Concomitant]
  14. ATENOLOL [Concomitant]
  15. ISOSORBIDE DIPITRADE [Concomitant]
  16. LISINOPRIL [Concomitant]
  17. GLIPIZIDE [Concomitant]
  18. METFORMIN [Concomitant]
  19. FINASTERIDE [Concomitant]
  20. TERAZOSIN HCL [Concomitant]
  21. METFORMIN [Concomitant]
  22. GAVAPENTIN [Concomitant]

REACTIONS (1)
  - DIARRHOEA [None]
